FAERS Safety Report 17839541 (Version 1)
Quarter: 2020Q2

REPORT INFORMATION
  Report Type: Spontaneous
  Country: FI (occurrence: FI)
  Receive Date: 20200529
  Receipt Date: 20200529
  Transmission Date: 20200714
  Serious: Yes (Disabling)
  Sender: FDA-Public Use
  Company Number: FI-ASTRAZENECA-2020SE69043

PATIENT
  Age: 48 Year
  Sex: Male

DRUGS (6)
  1. THYROXIN [Interacting]
     Active Substance: LEVOTHYROXINE
     Route: 048
     Dates: start: 201401
  2. ROSUVASTATIN. [Interacting]
     Active Substance: ROSUVASTATIN
     Indication: HYPERCHOLESTEROLAEMIA
     Route: 048
     Dates: start: 201701
  3. SEROQUEL [Suspect]
     Active Substance: QUETIAPINE FUMARATE
     Indication: MOOD ALTERED
     Route: 048
     Dates: start: 200804
  4. GLUCOSAMIN [Interacting]
     Active Substance: GLUCOSAMINE
     Indication: OSTEOARTHRITIS
     Route: 048
     Dates: start: 20200429, end: 20200515
  5. TRIPTYL [Interacting]
     Active Substance: AMITRIPTYLINE HYDROCHLORIDE
     Indication: MOOD ALTERED
     Route: 048
     Dates: start: 200804
  6. BISOPROLOL [Suspect]
     Active Substance: BISOPROLOL
     Indication: HEART RATE
     Route: 048
     Dates: start: 200804

REACTIONS (6)
  - Flatulence [Recovering/Resolving]
  - Abdominal distension [Recovering/Resolving]
  - Insomnia [Recovering/Resolving]
  - Malabsorption [Recovering/Resolving]
  - Drug interaction [Recovering/Resolving]
  - Diarrhoea [Recovering/Resolving]

NARRATIVE: CASE EVENT DATE: 20200507
